FAERS Safety Report 16458526 (Version 1)
Quarter: 2019Q2

REPORT INFORMATION
  Report Type: Spontaneous
  Country: US (occurrence: US)
  Receive Date: 20190620
  Receipt Date: 20190620
  Transmission Date: 20190711
  Serious: No
  Sender: FDA-Public Use
  Company Number: US-THERAPEUTICSMD-2019TMD00426

PATIENT
  Age: 66 Year
  Sex: Female
  Weight: 68.03 kg

DRUGS (8)
  1. BABY ASPIRIN [Concomitant]
     Active Substance: ASPIRIN
     Dosage: UNK, 1X/DAY
  2. ALPRAZOLAM. [Concomitant]
     Active Substance: ALPRAZOLAM
     Dosage: UNK, AS NEEDED
  3. ZOLPIDEM [Concomitant]
     Active Substance: ZOLPIDEM\ZOLPIDEM TARTRATE
     Dosage: UNK, 1X/DAY AT BEDTIME
  4. CALTRATE [Concomitant]
     Active Substance: CALCIUM CARBONATE
  5. IMVEXXY [Suspect]
     Active Substance: ESTRADIOL
     Indication: OESTROGEN REPLACEMENT THERAPY
     Dosage: 10 ?G, 2X/WEEK; AT BEDTINE USUALLY ON MONDAY AND THURSDAY
     Route: 067
     Dates: start: 201902
  6. MULTIVITAMIN [Concomitant]
     Active Substance: VITAMINS
  7. ATENOLOL. [Concomitant]
     Active Substance: ATENOLOL
     Dosage: 75 MG, 1X/DAY
  8. HYDROCHLOROTHIAZIDE. [Concomitant]
     Active Substance: HYDROCHLOROTHIAZIDE
     Dosage: 25 MG, 1X/DAY

REACTIONS (7)
  - Haematoma [Recovered/Resolved]
  - Back pain [Recovering/Resolving]
  - Off label use [Not Recovered/Not Resolved]
  - Musculoskeletal stiffness [Recovering/Resolving]
  - Skin abrasion [Recovered/Resolved]
  - Product dose omission [Not Recovered/Not Resolved]
  - Fall [Recovered/Resolved]

NARRATIVE: CASE EVENT DATE: 201902
